FAERS Safety Report 19587514 (Version 2)
Quarter: 2021Q3

REPORT INFORMATION
  Report Type: Report from Study
  Country: FR (occurrence: FR)
  Receive Date: 20210721
  Receipt Date: 20210729
  Transmission Date: 20211014
  Serious: Yes (Hospitalization)
  Sender: FDA-Public Use
  Company Number: NVSC2021FR162731

PATIENT
  Age: 59 Year
  Sex: Female
  Weight: 80 kg

DRUGS (22)
  1. METHOTREXATE. [Suspect]
     Active Substance: METHOTREXATE
     Indication: PRODUCT USED FOR UNKNOWN INDICATION
     Dosage: 15 MG, UNKNOWN
     Route: 031
     Dates: start: 20210505, end: 20210519
  2. DEXAMETHASONE. [Suspect]
     Active Substance: DEXAMETHASONE
     Indication: PRODUCT USED FOR UNKNOWN INDICATION
     Dosage: 40 MG, UNKNOWN
     Route: 048
     Dates: start: 20210505, end: 20210527
  3. PREDNISONE. [Suspect]
     Active Substance: PREDNISONE
     Indication: PRODUCT USED FOR UNKNOWN INDICATION
     Dosage: 40 MG, UNKNOWN
     Route: 031
     Dates: start: 20210505, end: 20210519
  4. SULFAMETHOXAZOLE AND TRIMETHOPRIM [Concomitant]
     Active Substance: SULFAMETHOXAZOLE\TRIMETHOPRIM
     Indication: ANTIFUNGAL PROPHYLAXIS
     Dosage: 800 MG, UNKNOWN
     Route: 048
     Dates: start: 20210430, end: 20210609
  5. OXYCODONE [Concomitant]
     Active Substance: OXYCODONE
     Dosage: 50 MG
     Route: 042
     Dates: start: 20210519, end: 20210606
  6. FUNGIZONE [Concomitant]
     Active Substance: AMPHOTERICIN B
     Indication: PROPHYLAXIS
     Dosage: 600 MG, UNKNOWN
     Route: 048
     Dates: start: 20210429, end: 20210607
  7. CYTARABINE. [Suspect]
     Active Substance: CYTARABINE
     Indication: PRODUCT USED FOR UNKNOWN INDICATION
     Dosage: 40 MG, UNKNOWN
     Route: 042
     Dates: start: 20210505, end: 20210519
  8. AMLODIPINE [Concomitant]
     Active Substance: AMLODIPINE BESYLATE
     Indication: HYPERTENSION
     Dosage: 5 MG
     Route: 048
     Dates: start: 20210503, end: 20210701
  9. OXYCODONE [Concomitant]
     Active Substance: OXYCODONE
     Indication: PAIN
     Dosage: 10 MG
     Route: 048
     Dates: start: 20210510, end: 20210519
  10. NILOTINIB [Suspect]
     Active Substance: NILOTINIB
     Indication: PHILADELPHIA CHROMOSOME POSITIVE
     Dosage: 800 MG, UNKNOWN
     Route: 048
     Dates: start: 20210505, end: 20210702
  11. VINCRISTINE [Suspect]
     Active Substance: VINCRISTINE
     Indication: PRODUCT USED FOR UNKNOWN INDICATION
     Dosage: 2 MG, UNKNOWN
     Route: 042
     Dates: start: 20210505, end: 20210526
  12. VALACICLOVIR [Concomitant]
     Active Substance: VALACYCLOVIR HYDROCHLORIDE
     Indication: INFECTION PROPHYLAXIS
     Dosage: 500 MG, UNKNOWN
     Route: 048
     Dates: start: 20210429, end: 20210523
  13. PANTOPRAZOLE [Concomitant]
     Active Substance: PANTOPRAZOLE
     Indication: PROPHYLAXIS
     Dosage: 40 MG
     Route: 042
     Dates: start: 20210523
  14. INSULINE LISPRO [Concomitant]
     Indication: HYPERGLYCAEMIA
     Dosage: 100 IU
     Route: 058
     Dates: start: 20210430, end: 20210604
  15. AMIKACINE [Concomitant]
     Active Substance: AMIKACIN
     Indication: PRODUCT USED FOR UNKNOWN INDICATION
     Dosage: UNK
     Route: 042
     Dates: start: 20210506, end: 20210604
  16. VANCOMYCINE [Concomitant]
     Active Substance: VANCOMYCIN
     Indication: INFLAMMATION
     Dosage: 3 G
     Route: 042
     Dates: start: 20210524, end: 20210603
  17. KETAMINE [Concomitant]
     Active Substance: KETAMINE
     Indication: PAIN
     Dosage: 24 MG
     Route: 042
     Dates: start: 20210524, end: 20210608
  18. METHYLPREDNISOLONE. [Concomitant]
     Active Substance: METHYLPREDNISOLONE
     Indication: PRODUCT USED FOR UNKNOWN INDICATION
     Dosage: 120 MG
     Route: 042
     Dates: start: 20210428, end: 20210504
  19. FILGRASTIM [Concomitant]
     Active Substance: FILGRASTIM
     Indication: NEUTROPENIA
     Dosage: 48 IU
     Route: 058
     Dates: start: 20210528, end: 20210601
  20. PIPERACILLIN AND TAZOBACTAM [Concomitant]
     Active Substance: PIPERACILLIN SODIUM\TAZOBACTAM SODIUM
     Indication: INFLAMMATION
     Dosage: 12 G
     Route: 042
     Dates: start: 20210524, end: 20210603
  21. ATENOLOL. [Concomitant]
     Active Substance: ATENOLOL
     Indication: HYPERTENSION
     Dosage: 100 MG, UNKNOWN
     Route: 048
     Dates: start: 20210430
  22. LINEZOLID. [Concomitant]
     Active Substance: LINEZOLID
     Indication: PNEUMONIA
     Dosage: 1200 MG
     Route: 042
     Dates: start: 20210511, end: 20210518

REACTIONS (5)
  - Diabetes insipidus [Unknown]
  - Bronchopulmonary aspergillosis [Recovering/Resolving]
  - Cholestasis [Unknown]
  - Systemic candida [Unknown]
  - Acute kidney injury [Unknown]

NARRATIVE: CASE EVENT DATE: 20210524
